FAERS Safety Report 8015334-1 (Version None)
Quarter: 2011Q4

REPORT INFORMATION
  Report Type: 
  Country: None (occurrence: None)
  Receive Date: 20111230
  Receipt Date: 20111221
  Transmission Date: 20120403
  Serious: Yes (Hospitalization, Other)
  Sender: FDA-Public Use
  Company Number: AR-AMGEN-ARGSP2011068130

PATIENT
  Age: 59 Year
  Sex: Female

DRUGS (9)
  1. AMLODIPINE [Concomitant]
     Dosage: 5 MG, 1X/DAY
     Route: 048
  2. DICLOFENAC SODIUM [Concomitant]
     Dosage: UNK
     Route: 048
  3. POLYACRYLIC ACID [Concomitant]
     Dosage: UNK
  4. NAPROXEN [Concomitant]
     Dosage: 500 MG, UNK
  5. POLYETHYLENE GLYCOL [Concomitant]
     Dosage: UNK
  6. ENBREL [Suspect]
     Indication: RHEUMATOID ARTHRITIS
     Dosage: 50 MG, WEEKLY
     Route: 058
     Dates: start: 20090213, end: 20100201
  7. ATORVASTATIN [Concomitant]
     Dosage: UNK
     Route: 048
  8. PREDNISONE [Concomitant]
     Dosage: 8 MG, 1X/DAY
  9. OMEPRAZOLE [Concomitant]
     Dosage: UNK
     Route: 048

REACTIONS (4)
  - RENAL FAILURE [None]
  - DEVICE RELATED INFECTION [None]
  - ARTHROPATHY [None]
  - KIDNEY INFECTION [None]
